FAERS Safety Report 7469980-4 (Version None)
Quarter: 2011Q2

REPORT INFORMATION
  Report Type: 
  Country: None (occurrence: None)
  Receive Date: 20110510
  Receipt Date: 20110426
  Transmission Date: 20111010
  Serious: Yes (Hospitalization)
  Sender: FDA-Public Use
  Company Number: FR-ROCHE-774090

PATIENT
  Sex: Female

DRUGS (4)
  1. ROVAMYCINE [Suspect]
     Dosage: DOSE: 3 MIU; THRICE DAILY.
     Route: 048
     Dates: start: 20110109, end: 20110111
  2. TAMIFLU [Suspect]
     Indication: INFLUENZA
     Route: 048
     Dates: start: 20110109, end: 20110113
  3. AUGMENTIN [Suspect]
     Route: 048
     Dates: start: 20110109, end: 20110122
  4. TARDYFERON B9 [Concomitant]
     Dosage: DOSE: ONCE DAILY.

REACTIONS (2)
  - CYTOLYTIC HEPATITIS [None]
  - PROTEINURIA [None]
